FAERS Safety Report 5160333-0 (Version None)
Quarter: 2006Q4

REPORT INFORMATION
  Report Type: 
  Country: None (occurrence: None)
  Receive Date: 20061120
  Receipt Date: 20061106
  Transmission Date: 20070319
  Serious: Yes (Other)
  Sender: FDA-Public Use
  Company Number: 2006SP005965

PATIENT
  Age: 15 Year
  Sex: Male

DRUGS (2)
  1. LORATADINE [Suspect]
     Indication: DRUG USE FOR UNKNOWN INDICATION
     Dosage: QD;
  2. CETIRIZINE HCL [Suspect]

REACTIONS (1)
  - LYMPHOMA [None]
